FAERS Safety Report 4971059-8 (Version None)
Quarter: 2006Q1

REPORT INFORMATION
  Report Type: 
  Country: None (occurrence: None)
  Receive Date: 20060202
  Receipt Date: 20051109
  Transmission Date: 20060701
  Serious: No
  Sender: FDA-Public Use
  Company Number: US-2005-023666

PATIENT
  Sex: Female

DRUGS (1)
  1. MIRENA [Suspect]
     Dosage: 20 UG/DAY, CONT, INTRA-UTERINE
     Route: 015
     Dates: start: 20050930, end: 20051108

REACTIONS (1)
  - SMEAR CERVIX ABNORMAL [None]
